FAERS Safety Report 16463143 (Version 4)
Quarter: 2019Q3

REPORT INFORMATION
  Report Type: Spontaneous
  Country: NL (occurrence: NL)
  Receive Date: 20190621
  Receipt Date: 20190812
  Transmission Date: 20191004
  Serious: Yes (Death, Hospitalization, Other)
  Sender: FDA-Public Use
  Company Number: NL-009507513-1906NLD004306

PATIENT
  Age: 38 Year
  Sex: Female
  Weight: 58 kg

DRUGS (5)
  1. PROGESTERONE. [Concomitant]
     Active Substance: PROGESTERONE
     Dosage: UNK
     Route: 067
  2. UTROGESTAN [Concomitant]
     Active Substance: PROGESTERONE
     Indication: IN VITRO FERTILISATION
     Dosage: 200 MILLIGRAM, 3 TIMES PER DAY
     Route: 067
     Dates: start: 20110907, end: 20110916
  3. GONAL-F [Concomitant]
     Active Substance: FOLLITROPIN
     Indication: IN VITRO FERTILISATION
     Dosage: 150 INTERNATIONAL UNIT
     Route: 058
     Dates: start: 20110822, end: 20110902
  4. PREGNYL [Suspect]
     Active Substance: CHORIOGONADOTROPIN ALFA
     Indication: IN VITRO FERTILISATION
     Dosage: 10000 INTERNATIONAL UNIT (IU) HCG IN DAY 12
     Route: 058
     Dates: start: 20110902, end: 20110902
  5. DECAPEPTYL (ACETATE) [Concomitant]
     Active Substance: TRIPTORELIN ACETATE
     Indication: IN VITRO FERTILISATION
     Dosage: 0,1
     Route: 058
     Dates: start: 20110808, end: 20110902

REACTIONS (3)
  - Ovarian hyperstimulation syndrome [Fatal]
  - Maternal exposure before pregnancy [Unknown]
  - Cerebral artery thrombosis [Fatal]

NARRATIVE: CASE EVENT DATE: 20110916
